FAERS Safety Report 21087610 (Version 1)
Quarter: 2022Q3

REPORT INFORMATION
  Report Type: Report from Study
  Country: US (occurrence: None)
  Receive Date: 20220715
  Receipt Date: 20220715
  Transmission Date: 20221026
  Serious: Yes (Death)
  Sender: FDA-Public Use
  Company Number: 2022A255918

PATIENT
  Age: 20325 Day
  Sex: Male

DRUGS (1)
  1. IMFINZI [Suspect]
     Active Substance: DURVALUMAB
     Indication: Lung carcinoma cell type unspecified stage 0
     Dosage: 500 MG/10 ML
     Route: 042
     Dates: start: 20220610

REACTIONS (1)
  - Death [Fatal]

NARRATIVE: CASE EVENT DATE: 20220710
